FAERS Safety Report 12400219 (Version 1)
Quarter: 2016Q2

REPORT INFORMATION
  Report Type: Spontaneous
  Country: US (occurrence: None)
  Receive Date: 20160524
  Receipt Date: 20160524
  Transmission Date: 20160815
  Serious: Yes (Other)
  Sender: FDA-Public Use
  Company Number: None

PATIENT
  Age: 35 Year
  Sex: Female
  Weight: 63.96 kg

DRUGS (1)
  1. XOLAIR [Suspect]
     Active Substance: OMALIZUMAB
     Indication: CHRONIC SPONTANEOUS URTICARIA
     Route: 058
     Dates: end: 20160210

REACTIONS (13)
  - Fatigue [None]
  - Tendonitis [None]
  - Feeling hot [None]
  - Paraesthesia [None]
  - Peripheral swelling [None]
  - Arthralgia [None]
  - Dizziness [None]
  - Cold sweat [None]
  - Hypopnoea [None]
  - Eye pain [None]
  - Eye swelling [None]
  - Joint swelling [None]
  - Blood pressure decreased [None]

NARRATIVE: CASE EVENT DATE: 20160523
